FAERS Safety Report 4485430-4 (Version None)
Quarter: 2004Q4

REPORT INFORMATION
  Report Type: 
  Country: None (occurrence: None)
  Receive Date: 20041026
  Receipt Date: 20041014
  Transmission Date: 20050328
  Serious: Yes (Hospitalization)
  Sender: FDA-Public Use
  Company Number: FR-JNJFOC-20041004374

PATIENT
  Sex: Female
  Weight: 56 kg

DRUGS (1)
  1. REMICADE [Suspect]
     Dosage: PATIENT RECEIVED 4 INFUSIONS.
     Route: 042

REACTIONS (5)
  - ANOREXIA [None]
  - APHAGIA [None]
  - APHTHOUS STOMATITIS [None]
  - CACHEXIA [None]
  - ODYNOPHAGIA [None]
